FAERS Safety Report 4715364-9 (Version None)
Quarter: 2005Q3

REPORT INFORMATION
  Report Type: 
  Country: None (occurrence: None)
  Receive Date: 20050715
  Receipt Date: 20050309
  Transmission Date: 20060218
  Serious: Yes (Other)
  Sender: FDA-Public Use
  Company Number: US-MERCK-0503USA02017

PATIENT
  Age: 74 Year
  Sex: Female
  Weight: 84 kg

DRUGS (9)
  1. VIOXX [Suspect]
     Indication: ARTHRITIS
     Route: 048
     Dates: start: 20020614, end: 20040101
  2. VIOXX [Suspect]
     Route: 048
     Dates: start: 20020614, end: 20040101
  3. DIOVAN [Concomitant]
     Indication: HYPERTENSION
     Route: 065
  4. SELEGILINE [Concomitant]
     Indication: PARKINSON'S DISEASE
     Route: 065
  5. INDAPAMIDE [Concomitant]
     Indication: HYPERTENSION
     Route: 065
  6. INDAPAMIDE [Concomitant]
     Indication: OEDEMA
     Route: 065
  7. LESCOL [Concomitant]
     Indication: BLOOD CHOLESTEROL INCREASED
     Route: 065
  8. GLUCOTROL [Concomitant]
     Indication: DIABETES MELLITUS
     Route: 065
  9. NIASPAN [Concomitant]
     Indication: BLOOD TRIGLYCERIDES INCREASED
     Route: 065

REACTIONS (1)
  - CEREBROVASCULAR ACCIDENT [None]
